FAERS Safety Report 25247647 (Version 1)
Quarter: 2025Q2

REPORT INFORMATION
  Report Type: Report from Study
  Country: CN (occurrence: CN)
  Receive Date: 20250428
  Receipt Date: 20250428
  Transmission Date: 20250717
  Serious: Yes (Other)
  Sender: BEIGENE
  Company Number: CN-BEIGENE-BGN-2025-006616

PATIENT

DRUGS (2)
  1. TISLELIZUMAB [Suspect]
     Active Substance: TISLELIZUMAB
     Indication: Hepatocellular carcinoma
     Dosage: 200 MILLIGRAM, Q3WK
  2. LENVATINIB [Suspect]
     Active Substance: LENVATINIB
     Indication: Hepatocellular carcinoma
     Dosage: ONCE DAILY AT A DOSE  OF 12 MG FOR THOSE WEIGHING?60 KG AND 8 MG FOR THOSE  WEIGHING{60 KG

REACTIONS (1)
  - Palmar-plantar erythrodysaesthesia syndrome [Unknown]
